FAERS Safety Report 9248861 (Version 1)
Quarter: 2013Q1

REPORT INFORMATION
  Report Type: Spontaneous
  Country: US (occurrence: None)
  Receive Date: 20130305
  Receipt Date: 20130305
  Transmission Date: 20140127
  Serious: Yes (Hospitalization)
  Sender: FDA-Public Use
  Company Number: 163-21880-12053305

PATIENT
  Age: 56 Year
  Sex: Male

DRUGS (8)
  1. REVLIMID [Suspect]
     Indication: PLASMA CELL MYELOMA
     Dosage: 10 MG , 14 IN 28 D, PO
     Route: 048
     Dates: start: 201106, end: 201203
  2. VELCADE [Concomitant]
  3. TREANDA (BENDAMUSTINE HYDROCHLORIDE) [Concomitant]
  4. ZOMETA (ZOLEDRONIC ACID) [Concomitant]
  5. BIAXIN (CLARITHROMYCIN) (UNKNOWN) [Concomitant]
  6. METHYLPREDNISLOLONE (METHYLPREDNISOLONE) (UNKNOWN) [Concomitant]
  7. HYDROCORTISONE (HYDROCORTISONE) (UNKNOWN) [Concomitant]
  8. DECADRON [Concomitant]

REACTIONS (1)
  - Blood immunoglobulin M increased [None]
